FAERS Safety Report 7878478-0 (Version None)
Quarter: 2011Q4

REPORT INFORMATION
  Report Type: 
  Country: None (occurrence: None)
  Receive Date: 20111028
  Receipt Date: 20111019
  Transmission Date: 20120403
  Serious: Yes (Other)
  Sender: FDA-Public Use
  Company Number: 1082082

PATIENT
  Age: 2 Year
  Sex: Male

DRUGS (4)
  1. HEPARIN SODIUM [Suspect]
     Indication: RESPIRATORY FUME INHALATION DISORDER
     Dosage: 5000 UNITS, RESPIRATORY
     Route: 055
  2. HEPARIN SODIUM [Concomitant]
  3. ACETYLCYSTEINE [Suspect]
     Indication: RESPIRATORY FUME INHALATION DISORDER
     Dosage: 3 ML, RESPIRATORY
     Route: 055
  4. FRESH FROZEN PLASMA [Concomitant]

REACTIONS (2)
  - OFF LABEL USE [None]
  - COAGULOPATHY [None]
